FAERS Safety Report 7992437-9 (Version None)
Quarter: 2011Q4

REPORT INFORMATION
  Report Type: 
  Country: None (occurrence: None)
  Receive Date: 20111219
  Receipt Date: 20111214
  Transmission Date: 20120403
  Serious: Yes (Death, Other)
  Sender: FDA-Public Use
  Company Number: PHHY2011IN109005

PATIENT
  Age: 20 Year
  Sex: Female
  Weight: 40 kg

DRUGS (1)
  1. OXYTOCIN [Suspect]
     Dosage: 15 UNITS

REACTIONS (8)
  - PULMONARY OEDEMA [None]
  - HEART RATE INCREASED [None]
  - LUNG DISORDER [None]
  - DEATH [None]
  - OXYGEN SATURATION IMMEASURABLE [None]
  - MATERNAL EXPOSURE DURING PREGNANCY [None]
  - GENERAL PHYSICAL HEALTH DETERIORATION [None]
  - BLOOD PRESSURE SYSTOLIC DECREASED [None]
